FAERS Safety Report 8518426-3 (Version None)
Quarter: 2012Q3

REPORT INFORMATION
  Report Type: 
  Country: None (occurrence: None)
  Receive Date: 20120718
  Receipt Date: 20120222
  Transmission Date: 20120928
  Serious: No
  Sender: FDA-Public Use
  Company Number: US-BRISTOL-MYERS SQUIBB COMPANY-16413544

PATIENT
  Age: 57 Year
  Sex: Female

DRUGS (4)
  1. TYLENOL [Concomitant]
  2. TEGRETOL [Concomitant]
  3. COUMADIN [Suspect]
     Indication: THROMBOSIS
     Dosage: INCREASED DOSE TO 7 THEN 10MG.
     Dates: start: 20111117
  4. LOVENOX [Suspect]
     Indication: THROMBOSIS

REACTIONS (3)
  - NASOPHARYNGITIS [None]
  - ACNE [None]
  - INTERNATIONAL NORMALISED RATIO DECREASED [None]
